FAERS Safety Report 6197817-2 (Version None)
Quarter: 2009Q2

REPORT INFORMATION
  Report Type: 
  Country: None (occurrence: None)
  Receive Date: 20090521
  Receipt Date: 20090512
  Transmission Date: 20091009
  Serious: Yes (Hospitalization)
  Sender: FDA-Public Use
  Company Number: AU-AMGEN-QUU346372

PATIENT
  Sex: Female

DRUGS (7)
  1. NEULASTA [Suspect]
     Indication: CHEMOTHERAPY
     Route: 058
     Dates: start: 20090508
  2. KYTRIL [Concomitant]
     Dates: start: 20090507, end: 20090508
  3. DEXAMETHASONE 4MG TAB [Concomitant]
     Dates: start: 20090507, end: 20090508
  4. EPIRUBICIN [Concomitant]
     Route: 042
     Dates: start: 20090507, end: 20090507
  5. CYCLOPHOSPHAMIDE [Concomitant]
     Route: 042
     Dates: start: 20090507, end: 20090507
  6. UNSPECIFIED MEDICATION [Concomitant]
     Route: 048
     Dates: start: 20090507, end: 20090509
  7. FLUOROURACIL [Concomitant]
     Route: 042
     Dates: start: 20090507, end: 20090507

REACTIONS (4)
  - BLOOD PRESSURE DECREASED [None]
  - FEELING HOT [None]
  - FLUSHING [None]
  - HEART RATE INCREASED [None]
